FAERS Safety Report 6613730-8 (Version None)
Quarter: 2010Q1

REPORT INFORMATION
  Report Type: 
  Country: None (occurrence: None)
  Receive Date: 20100225
  Receipt Date: 20100217
  Transmission Date: 20100710
  Serious: Yes (Other)
  Sender: FDA-Public Use
  Company Number: 2010SP010074

PATIENT
  Age: 54 Year
  Sex: Female

DRUGS (2)
  1. REMERON [Suspect]
     Indication: ANXIETY
     Dosage: 15 MG; ONCE;PO
     Route: 048
     Dates: start: 20091118, end: 20091118
  2. REMERON [Suspect]
     Indication: DEPRESSION
     Dosage: 15 MG; ONCE;PO
     Route: 048
     Dates: start: 20091118, end: 20091118

REACTIONS (6)
  - COGNITIVE DISORDER [None]
  - DRY MOUTH [None]
  - GAIT DISTURBANCE [None]
  - RASH [None]
  - TREMOR [None]
  - VISUAL IMPAIRMENT [None]
